FAERS Safety Report 4489198-7 (Version None)
Quarter: 2004Q4

REPORT INFORMATION
  Report Type: 
  Country: None (occurrence: None)
  Receive Date: 20041029
  Receipt Date: 20041020
  Transmission Date: 20050328
  Serious: Yes (Hospitalization, Congenital Anomaly)
  Sender: FDA-Public Use
  Company Number: FR-JNJFOC-20030902734

PATIENT
  Sex: Male
  Weight: 3.4 kg

DRUGS (6)
  1. RISPERDAL [Suspect]
  2. LYSANXIA [Suspect]
     Indication: ANXIETY
  3. CLOPIXOL [Suspect]
     Indication: DRUG USE FOR UNKNOWN INDICATION
  4. LEPTICUR [Concomitant]
  5. OROCAL [Concomitant]
     Route: 015
  6. TARDYFERON [Concomitant]
     Route: 015

REACTIONS (18)
  - AGITATION [None]
  - BRAIN MALFORMATION [None]
  - CEREBRAL ATROPHY [None]
  - DEVELOPMENTAL COORDINATION DISORDER [None]
  - DRUG EXPOSURE DURING PREGNANCY [None]
  - DRUG INEFFECTIVE [None]
  - DRUG WITHDRAWAL SYNDROME [None]
  - DYSKINESIA NEONATAL [None]
  - DYSTONIA [None]
  - FORCEPS DELIVERY [None]
  - HYPERTONIA [None]
  - HYPERTONIA NEONATAL [None]
  - HYPOTONIA NEONATAL [None]
  - IRRITABILITY [None]
  - OPISTHOTONUS [None]
  - OVERDOSE [None]
  - POOR SUCKING REFLEX [None]
  - VISUAL TRACKING TEST ABNORMAL [None]
